FAERS Safety Report 20312502 (Version 2)
Quarter: 2022Q1

REPORT INFORMATION
  Report Type: Spontaneous
  Country: US (occurrence: US)
  Receive Date: 20220110
  Receipt Date: 20220114
  Transmission Date: 20220423
  Serious: No
  Sender: FDA-Public Use
  Company Number: US-BEH-2022140188

PATIENT
  Sex: Female

DRUGS (1)
  1. HIZENTRA [Suspect]
     Active Substance: HUMAN IMMUNOGLOBULIN G
     Indication: Immunodeficiency
     Dosage: 30 MILLILITER, QW
     Route: 065

REACTIONS (4)
  - Rash [Unknown]
  - Incorrect drug administration rate [Unknown]
  - No adverse event [Unknown]
  - Product dose omission issue [Unknown]
